FAERS Safety Report 17365082 (Version 1)
Quarter: 2020Q1

REPORT INFORMATION
  Report Type: Spontaneous
  Country: US (occurrence: US)
  Receive Date: 20200204
  Receipt Date: 20200204
  Transmission Date: 20200409
  Serious: No
  Sender: FDA-Public Use
  Company Number: US-GLAXOSMITHKLINE-US2020AMR016562

PATIENT
  Sex: Female

DRUGS (1)
  1. LAMICTAL [Suspect]
     Active Substance: LAMOTRIGINE
     Indication: PRODUCT USED FOR UNKNOWN INDICATION
     Dosage: UNK UNK, QD
     Route: 065
     Dates: start: 2018

REACTIONS (7)
  - Anxiety [Unknown]
  - Withdrawal syndrome [Unknown]
  - Aggression [Unknown]
  - Panic attack [Unknown]
  - Discomfort [Unknown]
  - Intentional product misuse [Unknown]
  - Intentional underdose [Unknown]
